FAERS Safety Report 7386063-2 (Version None)
Quarter: 2011Q1

REPORT INFORMATION
  Report Type: 
  Country: None (occurrence: None)
  Receive Date: 20110331
  Receipt Date: 20110321
  Transmission Date: 20110831
  Serious: Yes (Other)
  Sender: FDA-Public Use
  Company Number: US-JNJFOC-20110310663

PATIENT
  Sex: Male
  Weight: 68.04 kg

DRUGS (4)
  1. DURAGESIC-50 [Suspect]
     Indication: PAIN
     Route: 062
  2. CLONIDINE [Concomitant]
     Indication: HYPERTENSION
     Route: 048
  3. PHENERGAN HCL [Concomitant]
     Indication: ABDOMINAL DISCOMFORT
     Route: 048
  4. DURAGESIC-50 [Suspect]
     Route: 062

REACTIONS (5)
  - DRUG WITHDRAWAL SYNDROME [None]
  - WRONG TECHNIQUE IN DRUG USAGE PROCESS [None]
  - ASTHENIA [None]
  - WEIGHT DECREASED [None]
  - INSOMNIA [None]
